FAERS Safety Report 17263857 (Version 1)
Quarter: 2020Q1

REPORT INFORMATION
  Report Type: Spontaneous
  Country: US (occurrence: US)
  Receive Date: 20200113
  Receipt Date: 20200113
  Transmission Date: 20200409
  Serious: Yes (Death)
  Sender: FDA-Public Use
  Company Number: US-PFIZER INC-2020014135

PATIENT
  Age: 47 Year
  Sex: Female

DRUGS (4)
  1. OXYCODONE [Suspect]
     Active Substance: OXYCODONE
     Dosage: UNK
     Route: 065
  2. HYDROCODONE [Suspect]
     Active Substance: HYDROCODONE
     Dosage: UNK
     Route: 065
  3. TEMAZEPAM. [Suspect]
     Active Substance: TEMAZEPAM
     Dosage: UNK
     Route: 065
  4. DIAZEPAM. [Suspect]
     Active Substance: DIAZEPAM
     Dosage: UNK
     Route: 065

REACTIONS (1)
  - Death [Fatal]

NARRATIVE: CASE EVENT DATE: 2018
